FAERS Safety Report 15606473 (Version 2)
Quarter: 2018Q4

REPORT INFORMATION
  Report Type: Report from Study
  Country: US (occurrence: US)
  Receive Date: 20181112
  Receipt Date: 20181212
  Transmission Date: 20190205
  Serious: Yes (Hospitalization)
  Sender: FDA-Public Use
  Company Number: PHEH2018US047643

PATIENT
  Sex: Male

DRUGS (1)
  1. ENTRESTO [Suspect]
     Active Substance: SACUBITRIL\VALSARTAN
     Indication: CARDIAC FAILURE CHRONIC
     Dosage: 1 DF, UNK (24MG OF SACUBITRIL/ 26MG OF VALSARTAN)
     Route: 048

REACTIONS (4)
  - Cardiac failure [Unknown]
  - Anxiety [Unknown]
  - Sleep disorder [Unknown]
  - Fatigue [Unknown]
